FAERS Safety Report 8438862-3 (Version None)
Quarter: 2012Q2

REPORT INFORMATION
  Report Type: 
  Country: None (occurrence: None)
  Receive Date: 20120615
  Receipt Date: 20120601
  Transmission Date: 20120825
  Serious: Yes (Other)
  Sender: FDA-Public Use
  Company Number: JP-JNJFOC-20120606461

PATIENT
  Sex: Male

DRUGS (2)
  1. RIUP 1% [Suspect]
     Indication: ALOPECIA
     Route: 061
     Dates: start: 20111001, end: 20111201
  2. RIUP 1% [Suspect]
     Route: 061

REACTIONS (1)
  - PRINZMETAL ANGINA [None]
